FAERS Safety Report 7726994-4 (Version None)
Quarter: 2011Q3

REPORT INFORMATION
  Report Type: 
  Country: None (occurrence: None)
  Receive Date: 20110902
  Receipt Date: 20110823
  Transmission Date: 20111222
  Serious: Yes (Other)
  Sender: FDA-Public Use
  Company Number: BR-PFIZER INC-2011196127

PATIENT
  Sex: Female

DRUGS (1)
  1. PRISTIQ [Suspect]
     Dosage: 50 MG, 1X/DAY
     Route: 048

REACTIONS (8)
  - INSOMNIA [None]
  - TREMOR [None]
  - DEPRESSED MOOD [None]
  - SENSORY DISTURBANCE [None]
  - THROAT TIGHTNESS [None]
  - DYSPHAGIA [None]
  - EXOPHTHALMOS [None]
  - EYE MOVEMENT DISORDER [None]
